FAERS Safety Report 23467550 (Version 3)
Quarter: 2024Q1

REPORT INFORMATION
  Report Type: Spontaneous
  Country: IT (occurrence: None)
  Receive Date: 20240201
  Receipt Date: 20240301
  Transmission Date: 20240410
  Serious: Yes (Hospitalization)
  Sender: FDA-Public Use
  Company Number: IT-ROCHE-3501619

PATIENT
  Age: 31 Year
  Sex: Male

DRUGS (1)
  1. OCREVUS [Suspect]
     Active Substance: OCRELIZUMAB
     Indication: Primary progressive multiple sclerosis
     Dosage: 300 MG 1 VIAL I.V. FOLLOWED BY A SECOND INFUSION OF 300 MG TWO WEEKS AFTER, THEN OCRELIZUMAB 600 I.V
     Route: 042
     Dates: start: 20230605, end: 20230619

REACTIONS (1)
  - Pneumonia [Recovering/Resolving]

NARRATIVE: CASE EVENT DATE: 20230903
